FAERS Safety Report 9288545 (Version 6)
Quarter: 2013Q3

REPORT INFORMATION
  Report Type: Report from Study
  Country: US (occurrence: US)
  Receive Date: 20130514
  Receipt Date: 20130723
  Transmission Date: 20140515
  Serious: Yes (Hospitalization, Other)
  Sender: FDA-Public Use
  Company Number: PHHO2013US006231

PATIENT
  Age: 65 Year
  Sex: Female
  Weight: 78.8 kg

DRUGS (8)
  1. AFINITOR [Suspect]
     Indication: BREAST CANCER METASTATIC
     Dosage: 5 MG, QD
     Route: 048
     Dates: start: 20130413
  2. VINORELBINE [Suspect]
     Indication: BREAST CANCER METASTATIC
     Dosage: 25 MG/M2, QW
     Route: 042
     Dates: start: 20130413
  3. TRASTUZUMAB [Suspect]
     Indication: BREAST CANCER METASTATIC
     Dosage: 2 MG/KG, QW
     Route: 042
     Dates: start: 20130413
  4. LISINOPRIL [Suspect]
     Indication: HYPERTENSION
     Dosage: 5 MG, QD
     Route: 048
     Dates: start: 20130306, end: 20130529
  5. ALDACTONE [Suspect]
     Indication: OEDEMA PERIPHERAL
     Dosage: 25 MG, QD
     Route: 048
     Dates: start: 20130517, end: 20130531
  6. ALDACTONE [Suspect]
     Dosage: UNK
     Route: 048
     Dates: end: 20130704
  7. NEUPOGEN [Concomitant]
     Indication: NEUTROPHIL COUNT DECREASED
     Dosage: 300 UG, UNK  SQ, FOR 3 DAYS POST INFUSION
     Route: 058
     Dates: start: 20130429, end: 20130610
  8. LEVAQUIN [Concomitant]
     Indication: URINARY TRACT INFECTION
     Dosage: 500 MG, QD
     Route: 048
     Dates: start: 20130524, end: 20130529

REACTIONS (4)
  - Urosepsis [Recovering/Resolving]
  - Failure to thrive [Recovered/Resolved with Sequelae]
  - Hypotension [Recovered/Resolved]
  - Blood creatinine increased [Not Recovered/Not Resolved]
